FAERS Safety Report 6430757-X (Version None)
Quarter: 2009Q4

REPORT INFORMATION
  Report Type: 
  Country: None (occurrence: None)
  Receive Date: 20091105
  Receipt Date: 20091105
  Transmission Date: 20100525
  Serious: Yes (Hospitalization)
  Sender: FDA-Public Use
  Company Number: None

PATIENT
  Age: 18 Year
  Sex: Female
  Weight: 59 kg

DRUGS (1)
  1. ETANERCEPT [Suspect]
     Indication: JUVENILE ARTHRITIS
     Dosage: 25 MG TWICE A WEEK SQ
     Route: 058
     Dates: start: 20071101, end: 20091027

REACTIONS (4)
  - ABSCESS NECK [None]
  - ANGIOPATHY [None]
  - FUSOBACTERIUM INFECTION [None]
  - NECK INJURY [None]
